FAERS Safety Report 5252980-2 (Version None)
Quarter: 2007Q1

REPORT INFORMATION
  Report Type: 
  Country: None (occurrence: None)
  Receive Date: 20070301
  Receipt Date: 20070220
  Transmission Date: 20070707
  Serious: Yes (Other)
  Sender: FDA-Public Use
  Company Number: CA-ROCHE-483528

PATIENT
  Age: 33 Year
  Sex: Female

DRUGS (2)
  1. ACCUTANE [Suspect]
     Indication: DRUG USE FOR UNKNOWN INDICATION
     Route: 048
  2. ADVIL COLD AND SINUS [Concomitant]

REACTIONS (19)
  - ANGER [None]
  - ARTHRITIS [None]
  - DEPRESSION [None]
  - DRY EYE [None]
  - DRY SKIN [None]
  - EYE PAIN [None]
  - FASCIITIS [None]
  - HEADACHE [None]
  - HYPOAESTHESIA [None]
  - JOINT STIFFNESS [None]
  - LIP DRY [None]
  - MOOD SWINGS [None]
  - NASAL DRYNESS [None]
  - OPTIC NEURITIS [None]
  - PAIN [None]
  - PALPITATIONS [None]
  - PSYCHOTIC DISORDER [None]
  - TACHYCARDIA [None]
  - VISUAL DISTURBANCE [None]
